FAERS Safety Report 16752733 (Version 5)
Quarter: 2020Q3

REPORT INFORMATION
  Report Type: Spontaneous
  Country: BR (occurrence: BR)
  Receive Date: 20190828
  Receipt Date: 20200730
  Transmission Date: 20201102
  Serious: Yes (Hospitalization, Other)
  Sender: FDA-Public Use
  Company Number: BR-SA-2019SA240132

PATIENT

DRUGS (2)
  1. MYCOPHENOLATE MOFETIL. [Suspect]
     Active Substance: MYCOPHENOLATE MOFETIL
     Dosage: UNK UNK, UNK
     Route: 065
  2. FABRAZYME [Suspect]
     Active Substance: AGALSIDASE BETA
     Indication: FABRY^S DISEASE
     Dosage: 2 DF (2 VIALS), Q15D
     Route: 041

REACTIONS (5)
  - Drug ineffective [Unknown]
  - Burning sensation [Unknown]
  - Blister rupture [Unknown]
  - Blister [Unknown]
  - Immunodeficiency [Unknown]
